FAERS Safety Report 5826153-6 (Version None)
Quarter: 2008Q3

REPORT INFORMATION
  Report Type: 
  Country: None (occurrence: None)
  Receive Date: 20080729
  Receipt Date: 20080723
  Transmission Date: 20090109
  Serious: Yes (Life-Threatening, Hospitalization)
  Sender: FDA-Public Use
  Company Number: DE-WYE-G00906408

PATIENT
  Sex: Female
  Weight: 80 kg

DRUGS (6)
  1. VENLAFAXINE HCL [Suspect]
     Indication: DEPRESSION
     Route: 048
     Dates: start: 20070301, end: 20071201
  2. VENLAFAXINE HCL [Suspect]
     Route: 048
     Dates: start: 20080103, end: 20080116
  3. MIRTAZAPINE [Suspect]
     Indication: DEPRESSION
     Route: 048
     Dates: start: 20080102, end: 20080116
  4. MIRTAZAPINE [Suspect]
     Indication: SLEEP DISORDER
  5. TRIMIPRAMINE MALEATE [Suspect]
     Indication: DEPRESSION
     Route: 048
     Dates: start: 20050101, end: 20071201
  6. TRIMIPRAMINE MALEATE [Suspect]
     Indication: SLEEP DISORDER

REACTIONS (9)
  - CONDITION AGGRAVATED [None]
  - DELUSION [None]
  - DEPRESSION [None]
  - DRUG EFFECT DECREASED [None]
  - INTENTIONAL SELF-INJURY [None]
  - LUNG INJURY [None]
  - PSYCHOTIC BEHAVIOUR [None]
  - SLEEP DISORDER [None]
  - SUICIDE ATTEMPT [None]
